FAERS Safety Report 10459856 (Version 5)
Quarter: 2015Q2

REPORT INFORMATION
  Report Type: Spontaneous
  Country: US (occurrence: US)
  Receive Date: 20140917
  Receipt Date: 20150615
  Transmission Date: 20150821
  Serious: Yes (Hospitalization, Other)
  Sender: FDA-Public Use
  Company Number: US-BAYER-2014-138415

PATIENT
  Age: 24 Year
  Sex: Female
  Weight: 58.96 kg

DRUGS (4)
  1. PROZAC [Concomitant]
     Active Substance: FLUOXETINE HYDROCHLORIDE
  2. TORADOL [Concomitant]
     Active Substance: KETOROLAC TROMETHAMINE
  3. MIRENA [Suspect]
     Active Substance: LEVONORGESTREL
     Dosage: 20 MCG/24HR, CONT
     Route: 015
     Dates: start: 20090602, end: 20130405
  4. DOXYCYCLINE. [Concomitant]
     Active Substance: DOXYCYCLINE

REACTIONS (10)
  - Depression [Not Recovered/Not Resolved]
  - Injury [None]
  - Pain [None]
  - Psychological trauma [Not Recovered/Not Resolved]
  - Device breakage [None]
  - Emotional distress [None]
  - Anxiety [Not Recovered/Not Resolved]
  - Uterine perforation [None]
  - Cyst [None]
  - Complication of device removal [None]

NARRATIVE: CASE EVENT DATE: 20090602
